FAERS Safety Report 5293246-4 (Version None)
Quarter: 2007Q2

REPORT INFORMATION
  Report Type: 
  Country: None (occurrence: None)
  Receive Date: 20070404
  Receipt Date: 20070321
  Transmission Date: 20071010
  Serious: Yes (Hospitalization)
  Sender: FDA-Public Use
  Company Number: 070326-0000342

PATIENT

DRUGS (1)
  1. DESOXYN [Suspect]

REACTIONS (1)
  - CARDIOMYOPATHY [None]
